FAERS Safety Report 12488798 (Version 1)
Quarter: 2016Q2

REPORT INFORMATION
  Report Type: Spontaneous
  Country: DE (occurrence: DE)
  Receive Date: 20160622
  Receipt Date: 20160622
  Transmission Date: 20160815
  Serious: Yes (Other)
  Sender: FDA-Public Use
  Company Number: DE-IPSEN BIOPHARMACEUTICALS, INC.-2016-05438

PATIENT
  Age: 53 Year
  Sex: Female

DRUGS (1)
  1. SOMATULINE AUTOGEL [Suspect]
     Active Substance: LANREOTIDE ACETATE
     Indication: NEUROENDOCRINE TUMOUR
     Dosage: 120 MG
     Route: 065

REACTIONS (6)
  - Liver function test increased [Unknown]
  - Skin irritation [Recovered/Resolved]
  - Pruritus [Recovered/Resolved]
  - Metastases to liver [Unknown]
  - Granuloma [Unknown]
  - Skin exfoliation [Recovered/Resolved]
